FAERS Safety Report 12809911 (Version 1)
Quarter: 2016Q4

REPORT INFORMATION
  Report Type: Spontaneous
  Country: US (occurrence: US)
  Receive Date: 20161005
  Receipt Date: 20161005
  Transmission Date: 20170207
  Serious: Yes (Death, Other)
  Sender: FDA-Public Use
  Company Number: US-TEVA-697258USA

PATIENT
  Sex: Male

DRUGS (1)
  1. AMIODARONE [Suspect]
     Active Substance: AMIODARONE
     Indication: HEART DISEASE CONGENITAL
     Route: 065

REACTIONS (3)
  - Mediastinal haemorrhage [Fatal]
  - Hyperthyroidism [Recovered/Resolved]
  - Cardiac failure [Fatal]
